FAERS Safety Report 5019487-9 (Version None)
Quarter: 2006Q2

REPORT INFORMATION
  Report Type: 
  Country: None (occurrence: None)
  Receive Date: 20060606
  Receipt Date: 20060301
  Transmission Date: 20061013
  Serious: Yes (Hospitalization, Other)
  Sender: FDA-Public Use
  Company Number: PHEH2006US02829

PATIENT
  Age: 58 Year
  Sex: Male
  Weight: 139.23 kg

DRUGS (10)
  1. ZELNORM [Suspect]
     Indication: CONSTIPATION
     Dosage: 6 MG, BID
     Route: 048
  2. ZELNORM [Suspect]
     Dosage: 6 MG, BID
     Route: 048
     Dates: end: 20060306
  3. CYMBALTA [Concomitant]
     Indication: AGGRESSION
     Dates: start: 20060223
  4. NEURONTIN [Concomitant]
  5. MIRALAX [Concomitant]
  6. MILK OF MAGNESIA TAB [Concomitant]
  7. LACTULOSE [Concomitant]
  8. VALIUM [Concomitant]
     Indication: AGGRESSION
     Dates: start: 20060223
  9. VICODIN [Concomitant]
     Indication: AGGRESSION
     Dates: start: 20060223
  10. RESTORIL [Concomitant]
     Dates: start: 20060223

REACTIONS (13)
  - ABNORMAL FAECES [None]
  - AGGRESSION [None]
  - CONSTIPATION [None]
  - DIARRHOEA [None]
  - DISEASE RECURRENCE [None]
  - FAECALOMA [None]
  - FAECES DISCOLOURED [None]
  - HAEMATOCHEZIA [None]
  - ILEUS [None]
  - RASH ERYTHEMATOUS [None]
  - URINARY RETENTION [None]
  - URINE COLOUR ABNORMAL [None]
  - WEIGHT DECREASED [None]
